FAERS Safety Report 7786923-4 (Version None)
Quarter: 2011Q3

REPORT INFORMATION
  Report Type: 
  Country: None (occurrence: None)
  Receive Date: 20110927
  Receipt Date: 20110913
  Transmission Date: 20111222
  Serious: Yes (Hospitalization)
  Sender: FDA-Public Use
  Company Number: 2011MA013478

PATIENT
  Age: 86 Year
  Sex: Male

DRUGS (3)
  1. RIFAMPIN [Suspect]
     Indication: PULMONARY TUBERCULOSIS
     Dosage: 25 MG
     Dates: start: 20091201
  2. ETHAMBUTOL HYDROCHLORIDE [Suspect]
     Indication: PULMONARY TUBERCULOSIS
     Dates: start: 20091201
  3. ISONIAZID [Suspect]
     Indication: PULMONARY TUBERCULOSIS
     Dates: start: 20091201

REACTIONS (7)
  - PLEURAL EFFUSION [None]
  - FATIGUE [None]
  - C-REACTIVE PROTEIN INCREASED [None]
  - PYREXIA [None]
  - INTERSTITIAL LUNG DISEASE [None]
  - RASH ERYTHEMATOUS [None]
  - DIARRHOEA [None]
